FAERS Safety Report 4811293-0 (Version None)
Quarter: 2005Q4

REPORT INFORMATION
  Report Type: 
  Country: None (occurrence: None)
  Receive Date: 20051026
  Receipt Date: 20051026
  Transmission Date: 20060501
  Serious: Yes (Hospitalization)
  Sender: FDA-Public Use
  Company Number: None

PATIENT
  Age: 58 Year
  Sex: Male

DRUGS (2)
  1. DOXARUBICIN [Suspect]
     Indication: NON-HODGKIN'S LYMPHOMA
     Dosage: 930 MG
  2. IFOSFAMIDE [Suspect]
     Dosage: 10 GM

REACTIONS (1)
  - DIARRHOEA [None]
